FAERS Safety Report 9239526 (Version 1)
Quarter: 2013Q2

REPORT INFORMATION
  Report Type: Spontaneous
  Country: US (occurrence: US)
  Receive Date: 20130418
  Receipt Date: 20130418
  Transmission Date: 20140414
  Serious: No
  Sender: FDA-Public Use
  Company Number: US-009507513-1304USA009164

PATIENT
  Sex: Male
  Weight: 56.69 kg

DRUGS (3)
  1. MIRALAX [Suspect]
     Indication: FAECES HARD
     Dosage: 3 TSP, QD
     Route: 048
     Dates: start: 2008
  2. MIRALAX [Suspect]
     Indication: BOWEL MOVEMENT IRREGULARITY
  3. MIRALAX [Suspect]
     Indication: MEDICAL OBSERVATION

REACTIONS (4)
  - Diarrhoea [Unknown]
  - Incorrect drug administration duration [Unknown]
  - Drug administered to patient of inappropriate age [Unknown]
  - Off label use [Unknown]
